FAERS Safety Report 17456592 (Version 3)
Quarter: 2020Q2

REPORT INFORMATION
  Report Type: Spontaneous
  Country: CA (occurrence: CA)
  Receive Date: 20200225
  Receipt Date: 20200401
  Transmission Date: 20200713
  Serious: Yes (Other)
  Sender: FDA-Public Use
  Company Number: CA-PFIZER INC-2019519900

PATIENT
  Age: 67 Year
  Sex: Female
  Weight: 79 kg

DRUGS (3)
  1. IBRANCE [Suspect]
     Active Substance: PALBOCICLIB
     Indication: BREAST CANCER METASTATIC
     Dosage: 125 MG, CYCLIC (DAILY X 21 DAYS, OFF 7 DAYS)
     Route: 048
     Dates: start: 20191203
  2. LETROZOLE. [Concomitant]
     Active Substance: LETROZOLE
     Indication: METASTATIC NEOPLASM
     Dosage: UNK
  3. HYDROMORPHONE [Concomitant]
     Active Substance: HYDROMORPHONE
     Indication: PAIN
     Dosage: 1 MG, AS NEEDED (EVERY 4 HOURS)
     Route: 048
     Dates: start: 201910

REACTIONS (1)
  - Pelvic fracture [Unknown]
